FAERS Safety Report 20565796 (Version 1)
Quarter: 2022Q1

REPORT INFORMATION
  Report Type: Spontaneous
  Country: US (occurrence: None)
  Receive Date: 20220307
  Receipt Date: 20220307
  Transmission Date: 20220423
  Serious: Yes (Death)
  Sender: FDA-Public Use
  Company Number: None

PATIENT
  Age: 78 Year
  Sex: Male
  Weight: 68.65 kg

DRUGS (1)
  1. REGORAFENIB [Suspect]
     Active Substance: REGORAFENIB
     Dates: start: 20201112, end: 20201126

REACTIONS (4)
  - Dysphonia [None]
  - Dysphonia [None]
  - Cognitive disorder [None]
  - Hospice care [None]

NARRATIVE: CASE EVENT DATE: 20201203
